FAERS Safety Report 8355848 (Version 3)
Quarter: 2012Q4

REPORT INFORMATION
  Report Type: 
  Country: IL (occurrence: IL)
  Receive Date: 20120126
  Receipt Date: 20121031
  Transmission Date: 20130627
  Serious: Yes (Death, Life-Threatening)
  Sender: FDA-Public Use
  Company Number: IL-NOVOPROD-343294

PATIENT
  Age: 65 Year
  Sex: Female

DRUGS (7)
  1. VICTOZA [Suspect]
     Indication: TYPE 2 DIABETES MELLITUS
     Dosage: UNK
     Route: 065
     Dates: start: 201008, end: 201110
  2. VICTOZA [Suspect]
     Indication: OBESITY
  3. VASCACE PLUS [Concomitant]
  4. LIPITOR [Concomitant]
  5. GLUCOPHAGE [Concomitant]
     Dosage: UNK
     Dates: start: 1998, end: 2011
  6. CILARIL PLUS [Concomitant]
  7. CILARIL [Concomitant]

REACTIONS (1)
  - Pancreatic carcinoma [Fatal]
